FAERS Safety Report 7972924-X (Version None)
Quarter: 2011Q4

REPORT INFORMATION
  Report Type: 
  Country: None (occurrence: None)
  Receive Date: 20111213
  Receipt Date: 20111208
  Transmission Date: 20120403
  Serious: Yes (Hospitalization)
  Sender: FDA-Public Use
  Company Number: NL-ROCHE-785141

PATIENT
  Sex: Female

DRUGS (24)
  1. ALLOPURINOL [Concomitant]
     Dosage: DOSE:1DD, DATE LAST DOSE PRIOR TO SAE:23 AUG 2011
  2. DOXORUBICIN HCL [Suspect]
     Indication: DIFFUSE LARGE B-CELL LYMPHOMA
     Dosage: LAST DOSE PRIOR TO SAE: 24 MAY 2011
     Route: 042
  3. DOXORUBICIN HCL [Suspect]
     Dosage: DATE OF LAST DOSE PRIOR TO SAE WAS 16 AUG 2011
     Route: 042
  4. FILGRASTIM [Suspect]
     Indication: DIFFUSE LARGE B-CELL LYMPHOMA
     Route: 058
  5. NAPROXEN [Concomitant]
     Dosage: DOSE:2DD, DATE LAST DOSE PRIOR TO SAE:23 AUG 2011
  6. VALACICLOVIR [Concomitant]
     Dosage: DOSE:2DD, DATE LAST DOSE PRIOR TO SAE:23 AUG 2011
     Route: 048
  7. LACTULOSE [Concomitant]
     Indication: CONSTIPATION
     Dosage: DOSE:3DD, DATE LAST DOSE PRIOR TO SAE:23 AUG 2011
  8. PREDNISONE TAB [Suspect]
     Dosage: DATE OF LAST DOSE PRIOR TO SAE WAS 20 AUG 2011
     Route: 048
  9. NYSTATIN [Concomitant]
     Route: 048
  10. COTRIM [Concomitant]
     Indication: PROPHYLAXIS
     Dosage: DOSE:1DD, DATE LAST DOSE PRIOR TO SAE:23 AUG 2011
  11. MABTHERA [Suspect]
     Indication: DIFFUSE LARGE B-CELL LYMPHOMA
     Dosage: LAST DOSE PRIOR TO SAE: 24 MAY 2011
     Route: 042
  12. VINCRISTINE [Suspect]
     Dosage: DATE OF LAST DOSE PRIOR TO SAE WAS 16 AUG 2011
     Route: 042
  13. NAPROXEN [Concomitant]
     Indication: PAIN
  14. MABTHERA [Suspect]
     Dosage: DATE OF LAST DOSE PRIOR TO SAE WAS 16 AUG 2011
     Route: 042
  15. CYCLOPHOSPHAMIDE [Suspect]
     Indication: DIFFUSE LARGE B-CELL LYMPHOMA
     Dosage: LAST DOSE PRIOR TO SAE: 24 MAY 2011.
     Route: 042
  16. PANTOPRAZOLE [Concomitant]
     Indication: PEPTIC ULCER
  17. VINCRISTINE [Suspect]
     Indication: DIFFUSE LARGE B-CELL LYMPHOMA
     Dosage: LAST DOSE PRIOR TO SAE: 24 MAY 2011
     Route: 042
  18. NYSTATIN [Concomitant]
     Indication: MUCOSAL INFLAMMATION
     Route: 048
  19. PANTOPRAZOLE [Concomitant]
     Dosage: DOSE:1DD,DATE LAST DOSE PRIOR TO SAE:23 AUG 2011
  20. FILGRASTIM [Suspect]
     Dosage: DATE OF LAST DOSE PRIOR TO SAE WAS 17 AUG 2011
     Route: 058
  21. VALACICLOVIR [Concomitant]
     Indication: PROPHYLAXIS
     Route: 048
  22. PREDNISONE TAB [Suspect]
     Indication: DIFFUSE LARGE B-CELL LYMPHOMA
     Dosage: LAST DOSE PRIOR TO SAE: 24 MAY 2011.
     Route: 048
  23. CYCLOPHOSPHAMIDE [Suspect]
     Dosage: DATE OF LAST DOSE PRIOR TO SAE WAS 16 AUG 2011
     Route: 042
  24. ALLOPURINOL [Concomitant]

REACTIONS (1)
  - CONSTIPATION [None]
